FAERS Safety Report 5068115-5 (Version None)
Quarter: 2006Q3

REPORT INFORMATION
  Report Type: 
  Country: None (occurrence: None)
  Receive Date: 20060802
  Receipt Date: 20060706
  Transmission Date: 20061208
  Serious: Yes (Other)
  Sender: FDA-Public Use
  Company Number: PHMT2006CA01485

PATIENT
  Age: 70 Year
  Sex: Female
  Weight: 48 kg

DRUGS (5)
  1. ZOMETA [Suspect]
     Indication: BREAST CANCER METASTATIC
     Dosage: 4 MG, QMO
     Route: 042
     Dates: start: 20050824, end: 20060426
  2. AROMASIN [Concomitant]
     Dosage: 25 MG, QD
  3. CAPECITABINE [Concomitant]
     Dosage: 1000MG/M2, BID X 14 DAYS, Q 4 WEEKS
  4. NEUPOGEN [Concomitant]
     Dosage: 480 UG , 7 DAYS
  5. VINORELBINE [Concomitant]
     Dosage: 25 MG/M2, Q 2 WEEKS

REACTIONS (6)
  - BONE DISORDER [None]
  - GINGIVAL EROSION [None]
  - HAEMOGLOBIN DECREASED [None]
  - OSTEONECROSIS [None]
  - TOOTH DISORDER [None]
  - TOOTH EXTRACTION [None]
